FAERS Safety Report 24874779 (Version 1)
Quarter: 2025Q1

REPORT INFORMATION
  Report Type: Spontaneous
  Country: CA (occurrence: CA)
  Receive Date: 20250122
  Receipt Date: 20250122
  Transmission Date: 20250409
  Serious: Yes (Hospitalization, Other)
  Sender: BOEHRINGER INGELHEIM
  Company Number: CA-BoehringerIngelheim-2025-BI-003639

PATIENT
  Age: 82 Year
  Sex: Female
  Weight: 96 kg

DRUGS (6)
  1. DABIGATRAN ETEXILATE MESYLATE [Suspect]
     Active Substance: DABIGATRAN ETEXILATE MESYLATE
     Indication: Atrial fibrillation
  2. LASIX TABS 40 MG [Concomitant]
     Indication: Product used for unknown indication
  3. SYNTHROID TAB 100MCG USP [Concomitant]
     Indication: Product used for unknown indication
  4. ZAROXOLYN [Concomitant]
     Active Substance: METOLAZONE
     Indication: Product used for unknown indication
  5. METOPROLOL [Concomitant]
     Active Substance: METOPROLOL
     Indication: Product used for unknown indication
  6. COVERSYL (8MG TABLET) [Concomitant]
     Indication: Product used for unknown indication

REACTIONS (2)
  - Anaemia [Recovered/Resolved]
  - Haemoglobin abnormal [Recovered/Resolved]
